FAERS Safety Report 9542216 (Version 1)
Quarter: 2013Q2

REPORT INFORMATION
  Report Type: Spontaneous
  Country: US (occurrence: None)
  Receive Date: 20130524
  Receipt Date: 20130524
  Transmission Date: 20140414
  Serious: No
  Sender: FDA-Public Use
  Company Number: PHEH2013US003981

PATIENT
  Age: 64 Year
  Sex: Female

DRUGS (2)
  1. GILENYA [Suspect]
     Indication: MULTIPLE SCLEROSIS
     Route: 048
     Dates: start: 20130214
  2. PRILOSEC (OMPERAZOLE) [Concomitant]

REACTIONS (3)
  - Gastrooesophageal reflux disease [None]
  - Fatigue [None]
  - Chest pain [None]
